FAERS Safety Report 10232679 (Version 1)
Quarter: 2014Q2

REPORT INFORMATION
  Report Type: Spontaneous
  Country: US (occurrence: None)
  Receive Date: 20140611
  Receipt Date: 20140611
  Transmission Date: 20141212
  Serious: Yes (Disabling)
  Sender: FDA-Public Use
  Company Number: None

PATIENT
  Age: 36 Year
  Sex: Female
  Weight: 83.92 kg

DRUGS (1)
  1. LAXACLEAR [Suspect]
     Indication: ABNORMAL FAECES
     Dosage: 17 GRAMS PER 1 CUP WATER, ONCE DAILY, TAKEN BY MOUTH
     Route: 048
     Dates: start: 20140101, end: 20140601

REACTIONS (4)
  - Bone pain [None]
  - Paraesthesia [None]
  - Drug screen positive [None]
  - Product quality issue [None]
